FAERS Safety Report 7375889-7 (Version None)
Quarter: 2011Q1

REPORT INFORMATION
  Report Type: 
  Country: None (occurrence: None)
  Receive Date: 20110325
  Receipt Date: 20110321
  Transmission Date: 20110831
  Serious: Yes (Hospitalization)
  Sender: FDA-Public Use
  Company Number: B0676847A

PATIENT
  Sex: Female

DRUGS (2)
  1. AUGMENTIN [Suspect]
     Route: 048
     Dates: start: 20100831, end: 20100903
  2. OFLOCET [Suspect]
     Route: 048
     Dates: start: 20100831, end: 20100906

REACTIONS (4)
  - TOXIC SKIN ERUPTION [None]
  - PRURITUS [None]
  - DERMATITIS EXFOLIATIVE [None]
  - RASH SCARLATINIFORM [None]
